FAERS Safety Report 14617529 (Version 1)
Quarter: 2018Q1

REPORT INFORMATION
  Report Type: Spontaneous
  Country: US (occurrence: US)
  Receive Date: 20180308
  Receipt Date: 20180308
  Transmission Date: 20180509
  Serious: Yes (Disabling, Other)
  Sender: FDA-Public Use
  Company Number: None

PATIENT
  Age: 29 Year
  Sex: Male
  Weight: 60.75 kg

DRUGS (2)
  1. HERBALOGIX CBD ENHANCED BODY LOTION [Suspect]
     Active Substance: CANNABIDIOL
     Indication: PAIN
     Dosage: ?          QUANTITY:4 OUNCE(S);?
     Route: 061
     Dates: start: 20180307
  2. MORPHINE [Concomitant]
     Active Substance: MORPHINE

REACTIONS (1)
  - Pain [None]

NARRATIVE: CASE EVENT DATE: 20180308
